FAERS Safety Report 21927609 (Version 1)
Quarter: 2023Q1

REPORT INFORMATION
  Report Type: Spontaneous
  Country: JP (occurrence: JP)
  Receive Date: 20230130
  Receipt Date: 20230130
  Transmission Date: 20230418
  Serious: Yes (Other)
  Sender: FDA-Public Use
  Company Number: JP-PFIZER INC-202300037087

PATIENT

DRUGS (1)
  1. AZITHROMYCIN DIHYDRATE [Suspect]
     Active Substance: AZITHROMYCIN DIHYDRATE
     Dosage: TAKEN 10000 MILLI NOW, TOOK 5000 MILLI ON 2 CONSECUTIVE DAYS
     Route: 048

REACTIONS (3)
  - Accidental overdose [Unknown]
  - Product administration error [Unknown]
  - Toxicity to various agents [Unknown]
